FAERS Safety Report 6680881-1 (Version None)
Quarter: 2010Q2

REPORT INFORMATION
  Report Type: 
  Country: None (occurrence: None)
  Receive Date: 20100414
  Receipt Date: 20100409
  Transmission Date: 20101027
  Serious: Yes (Other)
  Sender: FDA-Public Use
  Company Number: US-BRISTOL-MYERS SQUIBB COMPANY-15045925

PATIENT
  Age: 70 Year
  Sex: Female
  Weight: 52 kg

DRUGS (5)
  1. ERBITUX [Suspect]
     Indication: LARYNGEAL CANCER
     Dosage: 1DF-380MG TO 400MG ,LAST INF-24MAR2010,ERBITUX 200MG VIAL,
     Route: 042
  2. CARBOPLATIN [Suspect]
     Route: 042
  3. BENADRYL [Suspect]
     Indication: PREMEDICATION
     Route: 042
  4. ZOFRAN [Concomitant]
     Indication: PREMEDICATION
  5. DEXAMETHASONE [Concomitant]
     Indication: PREMEDICATION
     Dosage: 10MG TOGETHER IN 50ML OF D5W

REACTIONS (2)
  - DEHYDRATION [None]
  - FALL [None]
